FAERS Safety Report 7466398-5 (Version None)
Quarter: 2011Q2

REPORT INFORMATION
  Report Type: 
  Country: None (occurrence: None)
  Receive Date: 20110509
  Receipt Date: 20110428
  Transmission Date: 20111010
  Serious: Yes (Hospitalization, Other)
  Sender: FDA-Public Use
  Company Number: US-ACTELION-A-US2011-44741

PATIENT

DRUGS (3)
  1. COUMADIN [Concomitant]
  2. TRACLEER [Suspect]
     Indication: PULMONARY ARTERIAL HYPERTENSION
     Dosage: UNK
     Route: 048
     Dates: start: 20090624, end: 20110127
  3. LIPITOR [Concomitant]

REACTIONS (6)
  - LIVER FUNCTION TEST ABNORMAL [None]
  - CONVULSION [None]
  - ASPARTATE AMINOTRANSFERASE INCREASED [None]
  - COMA [None]
  - DIABETES MELLITUS [None]
  - ALANINE AMINOTRANSFERASE INCREASED [None]
